FAERS Safety Report 6710763-8 (Version None)
Quarter: 2010Q2

REPORT INFORMATION
  Report Type: 
  Country: None (occurrence: None)
  Receive Date: 20100504
  Receipt Date: 20100504
  Transmission Date: 20101027
  Serious: No
  Sender: FDA-Public Use
  Company Number: None

PATIENT
  Sex: Male
  Weight: 34.927 kg

DRUGS (1)
  1. CHILDREN'S ZYRTEC ALLERGY [Suspect]
     Indication: POSTNASAL DRIP
     Dosage: 1 TABLET ONCE A DAY PO
     Route: 048
     Dates: start: 20100428, end: 20100501

REACTIONS (1)
  - SENSORY LOSS [None]
